FAERS Safety Report 5392954-4 (Version None)
Quarter: 2007Q3

REPORT INFORMATION
  Report Type: 
  Country: None (occurrence: None)
  Receive Date: 20070719
  Receipt Date: 20070704
  Transmission Date: 20080115
  Serious: Yes (Other)
  Sender: FDA-Public Use
  Company Number: 158444USA

PATIENT
  Age: 73 Year
  Sex: Female

DRUGS (5)
  1. FLUOROURACIL [Suspect]
     Indication: METASTASES TO LUNG
  2. INTERFERON ALFA [Suspect]
     Indication: METASTASES TO LUNG
  3. CAPECITABINE [Suspect]
     Indication: METASTASES TO LUNG
  4. GEMCITABINE HCL [Suspect]
     Indication: METASTASES TO LUNG
  5. FLOXURIDINE [Suspect]
     Indication: METASTASES TO LUNG

REACTIONS (8)
  - ARTERIOVENOUS MALFORMATION [None]
  - BLOOD ERYTHROPOIETIN INCREASED [None]
  - HAEMATOCRIT INCREASED [None]
  - HAEMOGLOBIN INCREASED [None]
  - HAEMOPTYSIS [None]
  - METASTASES TO LUNG [None]
  - OXYGEN SATURATION DECREASED [None]
  - TACHYCARDIA [None]
